FAERS Safety Report 9388053 (Version 1)
Quarter: 2013Q3

REPORT INFORMATION
  Report Type: Spontaneous
  Country: US (occurrence: None)
  Receive Date: 20130703
  Receipt Date: 20130703
  Transmission Date: 20140515
  Serious: Yes (Other)
  Sender: FDA-Public Use
  Company Number: 2013P1010136

PATIENT
  Sex: 0

DRUGS (2)
  1. OXCARBAZEPINE [Suspect]
     Indication: IRRITABILITY
  2. OXCARBAZEPINE [Suspect]
     Indication: AGITATION

REACTIONS (1)
  - Convulsion [None]
